FAERS Safety Report 5151057-4 (Version None)
Quarter: 2006Q4

REPORT INFORMATION
  Report Type: 
  Country: None (occurrence: None)
  Receive Date: 20061114
  Receipt Date: 20061114
  Transmission Date: 20070319
  Serious: Yes (Other)
  Sender: FDA-Public Use
  Company Number: None

PATIENT
  Sex: Male

DRUGS (1)
  1. LISTERINE WHITENING PRE-BRUSH RINSE [Suspect]
     Dates: start: 20061103, end: 20061103

REACTIONS (9)
  - GINGIVAL DISCOLOURATION [None]
  - HYPOAESTHESIA ORAL [None]
  - INTENTIONAL DRUG MISUSE [None]
  - ORAL DISCOMFORT [None]
  - ORAL MUCOSAL DISCOLOURATION [None]
  - ORAL PAIN [None]
  - SKIN DISORDER [None]
  - SWELLING FACE [None]
  - TONGUE DISCOLOURATION [None]
